FAERS Safety Report 7076161-5 (Version None)
Quarter: 2010Q4

REPORT INFORMATION
  Report Type: 
  Country: None (occurrence: None)
  Receive Date: 20101101
  Receipt Date: 20101015
  Transmission Date: 20110411
  Serious: Yes (Hospitalization)
  Sender: FDA-Public Use
  Company Number: US-BAYER-200935876NA

PATIENT
  Age: 29 Year
  Sex: Female
  Weight: 109 kg

DRUGS (12)
  1. YAZ [Suspect]
     Indication: PREMENSTRUAL SYNDROME
     Route: 048
     Dates: start: 20070201, end: 20070501
  2. YASMIN [Suspect]
     Indication: PREMENSTRUAL SYNDROME
     Route: 048
     Dates: start: 20070201, end: 20070501
  3. NSAID [Concomitant]
     Dates: start: 20070101
  4. IMITREX [Concomitant]
     Dates: start: 20020101
  5. ALBUTEROL [Concomitant]
  6. VICONDINE/FLEXEROL [Concomitant]
     Indication: BACK PAIN
     Dates: start: 20050101, end: 20060101
  7. GABAPENTIN [Concomitant]
     Indication: MIGRAINE
     Dates: start: 20080101, end: 20100101
  8. AMYTRIPTOLENE [Concomitant]
     Indication: MIGRAINE
     Dates: start: 20080101, end: 20100101
  9. TRAZODONE HCL [Concomitant]
     Indication: INSOMNIA
     Dates: start: 20090101
  10. NEXIUM [Concomitant]
     Indication: ULCER
     Dates: start: 20090101
  11. CELEXA [Concomitant]
     Indication: DEPRESSION
     Dates: start: 20090101
  12. ACETAMINOPHEN [Concomitant]
     Indication: PAIN
     Dates: start: 20090101

REACTIONS (1)
  - CHOLECYSTECTOMY [None]
